FAERS Safety Report 9923728 (Version 1)
Quarter: 2014Q1

REPORT INFORMATION
  Report Type: Spontaneous
  Country: US (occurrence: US)
  Receive Date: 20140225
  Receipt Date: 20140225
  Transmission Date: 20141002
  Serious: No
  Sender: FDA-Public Use
  Company Number: US-AMGEN-USASP2014001004

PATIENT
  Age: 24 Year
  Sex: Female

DRUGS (8)
  1. ENBREL [Suspect]
     Indication: PRODUCT USED FOR UNKNOWN INDICATION
     Dosage: 50 MG, QWK
     Route: 058
  2. PLAQUENIL                          /00072602/ [Concomitant]
     Dosage: 200 MG, UNK
  3. CELEBREX [Concomitant]
     Dosage: 50 MG, UNK
  4. TOPAMAX [Concomitant]
     Dosage: 25 MG, UNK
  5. ULTRAM                             /00599202/ [Concomitant]
     Dosage: 50 MG, UNK
  6. INDERAL [Concomitant]
     Dosage: 10 MG, UNK
  7. NEURONTIN [Concomitant]
     Dosage: 100 MG, UNK
  8. CAPACET [Concomitant]
     Dosage: UNK

REACTIONS (1)
  - Therapeutic response decreased [Unknown]
